FAERS Safety Report 10524503 (Version 1)
Quarter: 2014Q4

REPORT INFORMATION
  Report Type: Spontaneous
  Country: US (occurrence: US)
  Receive Date: 20141017
  Receipt Date: 20141017
  Transmission Date: 20150528
  Serious: No
  Sender: FDA-Public Use
  Company Number: US-ELI_LILLY_AND_COMPANY-US201410002081

PATIENT
  Sex: Female

DRUGS (2)
  1. HUMALOG [Suspect]
     Active Substance: INSULIN LISPRO
     Indication: TYPE 1 DIABETES MELLITUS
     Dosage: UNK UNK, PRN
     Route: 065
     Dates: start: 201312
  2. LANTUS [Concomitant]
     Active Substance: INSULIN GLARGINE
     Dosage: 17 U, EACH EVENING
     Route: 065

REACTIONS (2)
  - Blood glucose increased [Recovering/Resolving]
  - Underdose [Recovering/Resolving]
